FAERS Safety Report 18924663 (Version 2)
Quarter: 2021Q1

REPORT INFORMATION
  Report Type: Spontaneous
  Country: US (occurrence: US)
  Receive Date: 20210222
  Receipt Date: 20210301
  Transmission Date: 20210420
  Serious: No
  Sender: FDA-Public Use
  Company Number: US-PFIZER INC-2021145309

PATIENT
  Age: 69 Year
  Sex: Male
  Weight: 147.39 kg

DRUGS (1)
  1. SUTENT [Suspect]
     Active Substance: SUNITINIB MALATE
     Indication: RENAL CANCER
     Dosage: 50 MG

REACTIONS (4)
  - Dyspepsia [Unknown]
  - Stomatitis [Unknown]
  - Hypoaesthesia [Unknown]
  - Skin lesion [Unknown]
